FAERS Safety Report 9399706 (Version 2)
Quarter: 2015Q4

REPORT INFORMATION
  Report Type: Report from Study
  Country: US (occurrence: US)
  Receive Date: 20130715
  Receipt Date: 20151118
  Transmission Date: 20160305
  Serious: Yes (Other)
  Sender: FDA-Public Use
  Company Number: US-ROCHE-1247021

PATIENT
  Sex: Male

DRUGS (14)
  1. TROPICAMIDE. [Concomitant]
     Active Substance: TROPICAMIDE
     Route: 065
  2. PREDNISOLONE. [Concomitant]
     Active Substance: PREDNISOLONE
     Route: 065
  3. TRIAMCINOLONE [Concomitant]
     Active Substance: TRIAMCINOLONE
     Route: 065
     Dates: start: 20130320
  4. BETADINE [Concomitant]
     Active Substance: POVIDONE-IODINE
  5. LYRICA [Concomitant]
     Active Substance: PREGABALIN
     Route: 065
  6. PROPARACAINE [Concomitant]
     Active Substance: PROPARACAINE
     Route: 065
  7. PHENYLEPHRINE [Concomitant]
     Active Substance: PHENYLEPHRINE\PHENYLEPHRINE HYDROCHLORIDE
     Route: 065
  8. AVASTIN [Suspect]
     Active Substance: BEVACIZUMAB
     Indication: DIABETIC RETINOPATHY
  9. MURINE [Concomitant]
     Dosage: 1 DROP OU AS NEEDED
     Route: 065
  10. AVASTIN [Suspect]
     Active Substance: BEVACIZUMAB
     Indication: DIABETIC RETINAL OEDEMA
     Dosage: LT EYE, ALSO RECEIVED ON 29/MAY2013,
     Route: 050
  11. JANUMET [Concomitant]
     Active Substance: METFORMIN HYDROCHLORIDE\SITAGLIPTIN PHOSPHATE
     Route: 065
  12. TORADOL [Concomitant]
     Active Substance: KETOROLAC TROMETHAMINE
  13. ASPIRIN. [Concomitant]
     Active Substance: ASPIRIN
     Route: 065
  14. GABAPENTIN. [Concomitant]
     Active Substance: GABAPENTIN
     Route: 065

REACTIONS (17)
  - Retinal tear [Unknown]
  - Gait disturbance [Unknown]
  - Conjunctival haemorrhage [Unknown]
  - Weight decreased [Unknown]
  - Anxiety [Unknown]
  - Lens disorder [Unknown]
  - Cataract [Unknown]
  - Fatigue [Unknown]
  - Muscle spasms [Unknown]
  - Diabetic retinopathy [Unknown]
  - Sinusitis [Unknown]
  - Cough [Unknown]
  - Myalgia [Unknown]
  - Depression [Unknown]
  - Vitreous floaters [Unknown]
  - Vitreous haemorrhage [Unknown]
  - Vision blurred [Unknown]
